FAERS Safety Report 7964575-8 (Version None)
Quarter: 2011Q4

REPORT INFORMATION
  Report Type: 
  Country: None (occurrence: None)
  Receive Date: 20111205
  Receipt Date: 20111205
  Transmission Date: 20120403
  Serious: Yes (Hospitalization)
  Sender: FDA-Public Use
  Company Number: None

PATIENT
  Sex: Male
  Weight: 91.4 kg

DRUGS (2)
  1. AFINITOR [Suspect]
     Dosage: 70 MG
     Dates: end: 20111103
  2. SANDOSTATIN [Suspect]
     Dosage: 20 MG
     Dates: end: 20111028

REACTIONS (3)
  - FEELING ABNORMAL [None]
  - ADENOVIRUS TEST POSITIVE [None]
  - PNEUMONITIS [None]
